FAERS Safety Report 6405069-0 (Version None)
Quarter: 2009Q4

REPORT INFORMATION
  Report Type: 
  Country: None (occurrence: None)
  Receive Date: 20091019
  Receipt Date: 20091008
  Transmission Date: 20100525
  Serious: Yes (Other)
  Sender: FDA-Public Use
  Company Number: ES-ASTRAZENECA-2009SE19021

PATIENT
  Age: 33 Year
  Sex: Female

DRUGS (4)
  1. MERONEM [Suspect]
     Indication: LUNG ABSCESS
     Route: 042
     Dates: start: 20090505, end: 20090519
  2. ZYVOXID [Suspect]
     Indication: LUNG ABSCESS
     Dates: start: 20090505, end: 20090519
  3. AMIKACINA [Suspect]
     Indication: LUNG ABSCESS
     Route: 042
     Dates: start: 20090505, end: 20090508
  4. TRIMETOPRIMA+SULFAMETOXAXAZOL=COTRIMOXAZOL [Concomitant]
     Indication: LUNG ABSCESS
     Dates: start: 20090505

REACTIONS (1)
  - HEPATITIS ACUTE [None]
